FAERS Safety Report 17371963 (Version 2)
Quarter: 2020Q2

REPORT INFORMATION
  Report Type: Spontaneous
  Country: CA (occurrence: CA)
  Receive Date: 20200205
  Receipt Date: 20200611
  Transmission Date: 20200713
  Serious: Yes (Other)
  Sender: FDA-Public Use
  Company Number: CA-TEVA-2020-CA-1179287

PATIENT
  Age: 44 Year
  Sex: Female

DRUGS (14)
  1. RITUXAN [Interacting]
     Active Substance: RITUXIMAB
     Indication: PRODUCT USED FOR UNKNOWN INDICATION
     Route: 065
  2. RITUXIMAB. [Interacting]
     Active Substance: RITUXIMAB
     Indication: PRODUCT USED FOR UNKNOWN INDICATION
     Route: 065
  3. FEBUXOSTAT. [Interacting]
     Active Substance: FEBUXOSTAT
     Indication: PRODUCT USED FOR UNKNOWN INDICATION
     Route: 065
  4. AZATHIOPRINE. [Interacting]
     Active Substance: AZATHIOPRINE
     Indication: MYOPATHY
     Dosage: 25 MILLIGRAM DAILY;
     Route: 065
  5. AZATHIOPRINE. [Interacting]
     Active Substance: AZATHIOPRINE
     Indication: IMMUNE-MEDIATED MYOSITIS
  6. METHOTREXATE. [Suspect]
     Active Substance: METHOTREXATE
     Indication: MYOPATHY
     Route: 058
  7. ALLOPURINOL. [Interacting]
     Active Substance: ALLOPURINOL
     Indication: IMMUNE-MEDIATED MYOSITIS
     Route: 065
  8. ULORIC [Interacting]
     Active Substance: FEBUXOSTAT
     Indication: IMMUNE-MEDIATED MYOSITIS
     Dosage: 40 MILLIGRAM DAILY;
     Route: 058
  9. ULORIC [Interacting]
     Active Substance: FEBUXOSTAT
     Indication: IMMUNE-MEDIATED MYOSITIS
  10. MYCOPHENOLATE MOFETIL. [Interacting]
     Active Substance: MYCOPHENOLATE MOFETIL
     Indication: PRODUCT USED FOR UNKNOWN INDICATION
     Route: 058
  11. ALLOPURINOL. [Interacting]
     Active Substance: ALLOPURINOL
     Indication: IMMUNE-MEDIATED MYOSITIS
  12. AZATHIOPRINE. [Interacting]
     Active Substance: AZATHIOPRINE
     Indication: IMMUNE-MEDIATED MYOSITIS
     Dosage: 250 MILLIGRAM DAILY;
     Route: 065
  13. ALLOPURINOL. [Interacting]
     Active Substance: ALLOPURINOL
     Indication: MYOPATHY
     Route: 065
  14. ULORIC [Interacting]
     Active Substance: FEBUXOSTAT
     Indication: MYOPATHY
     Route: 065

REACTIONS (9)
  - Eosinophilia [Recovering/Resolving]
  - Myopathy [Recovering/Resolving]
  - Drug interaction [Recovering/Resolving]
  - Off label use [Recovering/Resolving]
  - Drug reaction with eosinophilia and systemic symptoms [Recovering/Resolving]
  - Drug ineffective [Recovering/Resolving]
  - Pyrexia [Recovering/Resolving]
  - Hepatic mass [Recovering/Resolving]
  - Product use in unapproved indication [Recovering/Resolving]
